FAERS Safety Report 6970078-X (Version None)
Quarter: 2010Q3

REPORT INFORMATION
  Report Type: 
  Country: None (occurrence: None)
  Receive Date: 20100908
  Receipt Date: 20100830
  Transmission Date: 20110219
  Serious: Yes (Other)
  Sender: FDA-Public Use
  Company Number: FR-ASTRAZENECA-2010SE41080

PATIENT
  Age: 17951 Day
  Sex: Female

DRUGS (5)
  1. DIPRIVAN [Suspect]
     Dosage: ONE SINGLE DOSE
     Route: 042
     Dates: start: 20100128
  2. LIDOCAINE [Suspect]
     Dosage: ONE SINGLE DOSE
     Route: 042
     Dates: start: 20100128
  3. SUFENTA PRESERVATIVE FREE [Suspect]
     Dosage: ONE SINGLE DOSE
     Route: 042
     Dates: start: 20100128
  4. HYPNOVEL [Suspect]
     Dosage: ONE SINGLE DOSE
     Route: 042
     Dates: start: 20100128
  5. KETAMINE HCL [Suspect]
     Dosage: ONE SINGLE DOSE
     Route: 042
     Dates: start: 20100128

REACTIONS (2)
  - ANAPHYLACTIC SHOCK [None]
  - SKIN TEST NEGATIVE [None]
